FAERS Safety Report 6272392-2 (Version None)
Quarter: 2009Q3

REPORT INFORMATION
  Report Type: 
  Country: None (occurrence: None)
  Receive Date: 20090717
  Receipt Date: 20090709
  Transmission Date: 20100115
  Serious: Yes (Hospitalization)
  Sender: FDA-Public Use
  Company Number: JP-MERCK-0907USA01851

PATIENT
  Age: 47 Year
  Sex: Male

DRUGS (6)
  1. PEPCID [Suspect]
     Route: 042
     Dates: start: 20090529, end: 20090618
  2. WYPAX [Concomitant]
     Route: 048
  3. SERENACE [Concomitant]
     Route: 048
  4. ARTANE [Concomitant]
     Route: 048
     Dates: end: 20090616
  5. FORIT [Concomitant]
     Route: 048
     Dates: end: 20090702
  6. SOLITA T-3 [Concomitant]
     Route: 065

REACTIONS (2)
  - JAUNDICE [None]
  - RENAL IMPAIRMENT [None]
